FAERS Safety Report 4268565-0 (Version None)
Quarter: 2004Q1

REPORT INFORMATION
  Report Type: 
  Country: None (occurrence: None)
  Receive Date: 20040108
  Receipt Date: 20031230
  Transmission Date: 20041129
  Serious: Yes (Disabling)
  Sender: FDA-Public Use
  Company Number: 2003-DE-06502SI

PATIENT
  Age: 29 Year
  Sex: Female

DRUGS (3)
  1. VIRAMUNE [Suspect]
     Indication: HIV INFECTION
     Dosage: 200 MG (200 MG, 1 IN 1 D)
     Route: 048
     Dates: start: 20031008, end: 20031105
  2. VIDEX [Suspect]
     Indication: HIV INFECTION
     Dosage: 200 MG (100 MG, 2 IN 1 D)
     Route: 048
     Dates: start: 20031008, end: 20031105
  3. VIREAD [Suspect]
     Indication: HIV INFECTION
     Dosage: 138 MG
     Route: 048
     Dates: start: 20031008, end: 20031105

REACTIONS (8)
  - DRUG RASH WITH EOSINOPHILIA AND SYSTEMIC SYMPTOMS [None]
  - HEPATIC TRAUMA [None]
  - HEPATITIS [None]
  - PANCREATIC ENZYMES INCREASED [None]
  - PROTEINURIA [None]
  - PYREXIA [None]
  - UROBILIN URINE PRESENT [None]
  - URTICARIA [None]
